FAERS Safety Report 4284741-5 (Version None)
Quarter: 2004Q1

REPORT INFORMATION
  Report Type: 
  Country: None (occurrence: None)
  Receive Date: 20040130
  Receipt Date: 20040122
  Transmission Date: 20041129
  Serious: Yes (Hospitalization, Other)
  Sender: FDA-Public Use
  Company Number: HQWYE532422JAN04

PATIENT
  Age: 17 Year
  Sex: Female

DRUGS (3)
  1. CHILDREN'S ADVIL [Suspect]
     Indication: PYREXIA
     Dosage: 75 MG X 4/D, ORAL
     Route: 048
     Dates: start: 20020704, end: 20020711
  2. CHILDREN'S ADVIL [Suspect]
     Indication: VARICELLA
     Dosage: 75 MG X 4/D, ORAL
     Route: 048
     Dates: start: 20020704, end: 20020711
  3. PRIMALAN (MEQUITAZINE) [Concomitant]

REACTIONS (1)
  - CELLULITIS [None]
